FAERS Safety Report 18024380 (Version 2)
Quarter: 2020Q3

REPORT INFORMATION
  Report Type: Spontaneous
  Country: AT (occurrence: AT)
  Receive Date: 20200715
  Receipt Date: 20200727
  Transmission Date: 20201103
  Serious: Yes (Other)
  Sender: FDA-Public Use
  Company Number: NVSC2020AT193484

PATIENT
  Age: 4 Month
  Sex: Female

DRUGS (2)
  1. PREDNISOLON [Concomitant]
     Active Substance: PREDNISOLONE
     Indication: PRODUCT USED FOR UNKNOWN INDICATION
     Dosage: 5 MG (3X5 MG)
     Route: 048
     Dates: start: 20200706, end: 20200715
  2. ZOLGENSMA [Suspect]
     Active Substance: ONASEMNOGENE ABEPARVOVEC-XIOI
     Indication: SPINAL MUSCULAR ATROPHY
     Dosage: 33 ML, ONCE/SINGLE (ONE SINGLE DOSE)
     Route: 042
     Dates: start: 20200617, end: 20200617

REACTIONS (5)
  - Epilepsy [Recovered/Resolved]
  - Salivary hypersecretion [Recovered/Resolved]
  - Restlessness [Recovered/Resolved]
  - Altered state of consciousness [Recovered/Resolved]
  - Poor sucking reflex [Recovered/Resolved]

NARRATIVE: CASE EVENT DATE: 20200701
